FAERS Safety Report 4361539-0 (Version None)
Quarter: 2004Q2

REPORT INFORMATION
  Report Type: 
  Country: None (occurrence: None)
  Receive Date: 20040521
  Receipt Date: 20040412
  Transmission Date: 20050107
  Serious: No
  Sender: FDA-Public Use
  Company Number: US-GLAXOSMITHKLINE-A0506806A

PATIENT
  Sex: Female
  Weight: 45.5 kg

DRUGS (2)
  1. ZYBAN [Suspect]
     Route: 048
  2. WELLBUTRIN [Suspect]
     Route: 048

REACTIONS (3)
  - INSOMNIA [None]
  - NERVOUSNESS [None]
  - TINNITUS [None]
